FAERS Safety Report 10478714 (Version 2)
Quarter: 2014Q4

REPORT INFORMATION
  Report Type: Spontaneous
  Country: US (occurrence: US)
  Receive Date: 20140926
  Receipt Date: 20141019
  Transmission Date: 20150528
  Serious: Yes (Life-Threatening, Hospitalization)
  Sender: FDA-Public Use
  Company Number: US-BRISTOL-MYERS SQUIBB COMPANY-21420237

PATIENT
  Age: 78 Year
  Sex: Male
  Weight: 62.58 kg

DRUGS (8)
  1. ABILIFY [Suspect]
     Active Substance: ARIPIPRAZOLE
     Indication: SCHIZOPHRENIA, PARANOID TYPE
     Dates: start: 201304
  2. HYDROCODONE [Concomitant]
     Active Substance: HYDROCODONE
     Indication: DECUBITUS ULCER
  3. ZITHROMAX [Concomitant]
     Active Substance: AZITHROMYCIN DIHYDRATE
     Indication: OSTEOMYELITIS
  4. METOPROLOL [Concomitant]
     Active Substance: METOPROLOL
  5. ZOLOFT [Concomitant]
     Active Substance: SERTRALINE HYDROCHLORIDE
  6. FERROUS SULFATE [Concomitant]
     Active Substance: FERROUS SULFATE\FERROUS SULFATE, DRIED
  7. FLEXERIL [Concomitant]
     Active Substance: CYCLOBENZAPRINE HYDROCHLORIDE
  8. AMOXICILLIN. [Concomitant]
     Active Substance: AMOXICILLIN
     Indication: OSTEOMYELITIS

REACTIONS (3)
  - Muscle contracture [Unknown]
  - Gastrointestinal haemorrhage [Unknown]
  - Musculoskeletal stiffness [Unknown]
